FAERS Safety Report 9624570 (Version 2)
Quarter: 2013Q4

REPORT INFORMATION
  Report Type: Spontaneous
  Country: DE (occurrence: None)
  Receive Date: 20131010
  Receipt Date: 20131022
  Transmission Date: 20140711
  Serious: Yes (Other)
  Sender: FDA-Public Use
  Company Number: VAL_02763_2013

PATIENT
  Sex: Male

DRUGS (8)
  1. METOPROLOL [Suspect]
     Indication: HYPERTENSION
     Route: 048
  2. GILENYA [Suspect]
     Indication: MULTIPLE SCLEROSIS
     Route: 048
     Dates: start: 201209
  3. CITALOPRAM(CITALOPRAM) [Suspect]
     Indication: DEPRESSION
     Route: 048
  4. SILYBUM MARIANUM [Concomitant]
  5. VITAMIN B COMPLEX [Concomitant]
  6. RAMIPRIL [Concomitant]
  7. THYRONAJOD [Concomitant]
  8. NSAID^S [Concomitant]

REACTIONS (7)
  - Gamma-glutamyltransferase increased [None]
  - Alanine aminotransferase increased [None]
  - Blood alkaline phosphatase increased [None]
  - Therapy cessation [None]
  - Prescribed underdose [None]
  - Depression [None]
  - Hypertension [None]
